FAERS Safety Report 4880684-4 (Version None)
Quarter: 2006Q1

REPORT INFORMATION
  Report Type: 
  Country: None (occurrence: None)
  Receive Date: 20060113
  Receipt Date: 20050823
  Transmission Date: 20060701
  Serious: Yes (Hospitalization)
  Sender: FDA-Public Use
  Company Number: US-MERCK-0508USA03909

PATIENT
  Age: 84 Year
  Sex: Female
  Weight: 71 kg

DRUGS (6)
  1. VIOXX [Suspect]
     Indication: BACK PAIN
     Route: 048
     Dates: start: 20021001, end: 20021201
  2. VIOXX [Suspect]
     Route: 048
     Dates: start: 20030301, end: 20030401
  3. VIOXX [Suspect]
     Route: 048
     Dates: start: 20040401, end: 20040601
  4. ASPIRIN [Concomitant]
     Route: 065
  5. DYAZIDE [Concomitant]
     Route: 065
  6. MEGACE [Concomitant]
     Indication: DECREASED APPETITE
     Route: 065

REACTIONS (29)
  - ANXIETY [None]
  - BACK DISORDER [None]
  - BRADYARRHYTHMIA [None]
  - CEREBELLAR INFARCTION [None]
  - CEREBROVASCULAR ACCIDENT [None]
  - CONJUNCTIVITIS [None]
  - CONVULSION [None]
  - DEAFNESS [None]
  - DYSLIPIDAEMIA [None]
  - FALL [None]
  - GASTRITIS [None]
  - GASTROOESOPHAGEAL REFLUX DISEASE [None]
  - HAEMATOMA [None]
  - HAEMATURIA [None]
  - HEPATIC ENZYME INCREASED [None]
  - HYDRONEPHROSIS [None]
  - HYPERTENSIVE HEART DISEASE [None]
  - HYPOALBUMINAEMIA [None]
  - HYPOKALAEMIA [None]
  - HYPONATRAEMIA [None]
  - LACRIMATION INCREASED [None]
  - LEUKOCYTOSIS [None]
  - METABOLIC ACIDOSIS [None]
  - NEUROGENIC BLADDER [None]
  - OEDEMA PERIPHERAL [None]
  - RENAL CYST [None]
  - SINUSITIS [None]
  - SYNCOPE [None]
  - URINARY TRACT INFECTION [None]
